FAERS Safety Report 8310747-2 (Version None)
Quarter: 2012Q2

REPORT INFORMATION
  Report Type: 
  Country: None (occurrence: None)
  Receive Date: 20120425
  Receipt Date: 20120417
  Transmission Date: 20120825
  Serious: Yes (Other)
  Sender: FDA-Public Use
  Company Number: ES-JNJFOC-20120409827

PATIENT

DRUGS (1)
  1. ETRAVIRINE [Suspect]
     Indication: HIV INFECTION
     Route: 048

REACTIONS (3)
  - CONDITION AGGRAVATED [None]
  - HIV INFECTION [None]
  - HEPATIC CIRRHOSIS [None]
